FAERS Safety Report 9286623 (Version 2)
Quarter: 2013Q2

REPORT INFORMATION
  Report Type: Spontaneous
  Country: SE (occurrence: SE)
  Receive Date: 20130513
  Receipt Date: 20130612
  Transmission Date: 20140414
  Serious: Yes (Hospitalization)
  Sender: FDA-Public Use
  Company Number: SE-ASTRAZENECA-2013SE30694

PATIENT
  Age: 89 Year
  Sex: Male

DRUGS (5)
  1. SELOKEN ZOC [Suspect]
     Indication: ATRIAL FIBRILLATION
     Route: 048
     Dates: start: 2012
  2. SELOKEN ZOC [Suspect]
     Indication: ATRIAL FIBRILLATION
     Route: 048
     Dates: start: 2012
  3. KREDEX [Suspect]
     Route: 065
  4. TROMBYL [Concomitant]
     Indication: ATRIAL FIBRILLATION
  5. TRIMETOPRIM [Concomitant]
     Indication: URINARY TRACT INFECTION

REACTIONS (4)
  - Fatigue [Unknown]
  - Bradycardia [Unknown]
  - Atrial fibrillation [Unknown]
  - Drug ineffective [Unknown]
